FAERS Safety Report 20734814 (Version 2)
Quarter: 2022Q2

REPORT INFORMATION
  Report Type: Spontaneous
  Country: JP (occurrence: JP)
  Receive Date: 20220421
  Receipt Date: 20220520
  Transmission Date: 20220720
  Serious: Yes (Hospitalization)
  Sender: FDA-Public Use
  Company Number: JP-MSD-M2022-10251

PATIENT
  Sex: Female

DRUGS (3)
  1. KEYTRUDA [Suspect]
     Active Substance: PEMBROLIZUMAB
     Indication: Triple negative breast cancer
     Dosage: 200 MILLIGRAM, Q3W
     Route: 041
     Dates: start: 20220225
  2. GEMCITABINE HYDROCHLORIDE [Suspect]
     Active Substance: GEMCITABINE HYDROCHLORIDE
     Indication: Triple negative breast cancer
     Dosage: 1000 MILLIGRAM/SQ. METER, CYCLICAL (1000 MG/M2 ON DAYS 1 AND 8 OF EACH CYCLE (ONE CYCLE OF 21 DAYS))
     Route: 041
     Dates: start: 20220225
  3. CARBOPLATIN [Suspect]
     Active Substance: CARBOPLATIN
     Indication: Triple negative breast cancer
     Dosage: DOSE EQUIVALENT TO AUC2, CYCLICAL (DOSE EQUIVALENT TO AUC2 ON DAYS 1 AND 8 OF EACH CYCLE (ONE CYCLE
     Route: 041
     Dates: start: 20220225

REACTIONS (3)
  - Dehydration [Recovered/Resolved]
  - Stomatitis [Unknown]
  - Anaemia [Unknown]

NARRATIVE: CASE EVENT DATE: 20220101
